FAERS Safety Report 8339616 (Version 5)
Quarter: 2012Q4

REPORT INFORMATION
  Report Type: 
  Country: US (occurrence: US)
  Receive Date: 20120117
  Receipt Date: 20120914
  Transmission Date: 20130627
  Serious: Yes (Other)
  Sender: FDA-Public Use
  Company Number: US-PFIZER INC-2012010088

PATIENT
  Age: 53 Year
  Sex: Female
  Weight: 60 kg

DRUGS (4)
  1. PREMARIN [Suspect]
     Indication: HORMONE LEVEL ABNORMAL
     Dosage: 1x/day
     Route: 048
     Dates: start: 2007, end: 2008
  2. PREMARIN [Suspect]
     Indication: OVARIAN CYST
     Dosage: 0.3 mg, daily
     Route: 048
     Dates: start: 2012
  3. ARMOUR THYROID [Concomitant]
     Indication: HYPOTHYROIDISM
     Dosage: 5 grain, 1x/day
  4. ARMOUR THYROID [Concomitant]
     Indication: THYROID DISORDER

REACTIONS (5)
  - Thrombosis [Unknown]
  - Fibroma [Unknown]
  - Headache [Unknown]
  - Abdominal pain upper [Unknown]
  - Weight increased [Unknown]
